APPROVED DRUG PRODUCT: THEELIN
Active Ingredient: ESTRONE
Strength: 5MG/ML
Dosage Form/Route: INJECTABLE;INJECTION
Application: N003977 | Product #003
Applicant: PARKEDALE PHARMACEUTICALS INC
Approved: Approved Prior to Jan 1, 1982 | RLD: No | RS: No | Type: DISCN